FAERS Safety Report 6232112-4 (Version None)
Quarter: 2009Q2

REPORT INFORMATION
  Report Type: 
  Country: None (occurrence: None)
  Receive Date: 20090616
  Receipt Date: 20090610
  Transmission Date: 20091009
  Serious: Yes (Other)
  Sender: FDA-Public Use
  Company Number: US-JNJCH-2009016069

PATIENT
  Age: 75 Year
  Sex: Female
  Weight: 99.8 kg

DRUGS (4)
  1. DESITIN CREAMY DIAPER RASH [Suspect]
     Indication: DERMATITIS DIAPER
     Dosage: TEXT:^ALOT^ IN THE EVENING
     Route: 061
     Dates: start: 20090608, end: 20090609
  2. TENORMIN [Concomitant]
     Indication: HYPERTENSION
     Dosage: TEXT:100 MG DAILY
     Route: 065
  3. TYLENOL (CAPLET) [Concomitant]
     Indication: ARTHRITIS
     Dosage: TEXT:80 MG TWICE DAILY
     Route: 065
  4. LASIX [Concomitant]
     Indication: HYPERTENSION
     Dosage: TEXT:40 MG DAILY
     Route: 065

REACTIONS (5)
  - COUGH [None]
  - DYSGEUSIA [None]
  - EPISTAXIS [None]
  - PULMONARY CONGESTION [None]
  - WHEEZING [None]
